FAERS Safety Report 6527060-6 (Version None)
Quarter: 2010Q1

REPORT INFORMATION
  Report Type: 
  Country: None (occurrence: None)
  Receive Date: 20100105
  Receipt Date: 20091228
  Transmission Date: 20100710
  Serious: Yes (Death)
  Sender: FDA-Public Use
  Company Number: JP-ROCHE-677302

PATIENT
  Sex: Male

DRUGS (1)
  1. AVASTIN [Suspect]
     Indication: LARGE INTESTINE CARCINOMA
     Route: 041

REACTIONS (1)
  - NEUTROPHIL COUNT DECREASED [None]
